FAERS Safety Report 4658351-1 (Version None)
Quarter: 2005Q2

REPORT INFORMATION
  Report Type: 
  Country: None (occurrence: None)
  Receive Date: 20050511
  Receipt Date: 20050429
  Transmission Date: 20051028
  Serious: Yes (Other)
  Sender: FDA-Public Use
  Company Number: US-JNJFOC-20050501936

PATIENT
  Age: 64 Year
  Sex: Female

DRUGS (5)
  1. INFLIXIMAB [Suspect]
     Indication: RHEUMATOID ARTHRITIS
     Route: 042
  2. ENALAPRIL [Concomitant]
  3. PREDNISONE [Concomitant]
  4. ACETAMINOPHEN/PROPOXYPHEN NAPSYLATE [Concomitant]
  5. ACETAMINOPHEN/PROPOXYPHEN NAPSYLATE [Concomitant]

REACTIONS (3)
  - GLOMERULONEPHRITIS FOCAL [None]
  - RENAL NECROSIS [None]
  - SECONDARY AMYLOIDOSIS [None]
